FAERS Safety Report 6039054-8 (Version None)
Quarter: 2009Q1

REPORT INFORMATION
  Report Type: 
  Country: None (occurrence: None)
  Receive Date: 20090115
  Receipt Date: 20090106
  Transmission Date: 20090719
  Serious: Yes (Other)
  Sender: FDA-Public Use
  Company Number: DE-ELI_LILLY_AND_COMPANY-DE200812004678

PATIENT
  Sex: Male
  Weight: 81 kg

DRUGS (3)
  1. STRATTERA [Suspect]
     Indication: ATTENTION DEFICIT/HYPERACTIVITY DISORDER
     Dosage: 10 MG, DAILY (1/D)
     Route: 048
     Dates: start: 20080625
  2. STRATTERA [Suspect]
     Dosage: 18 MG, DAILY (1/D)
     Route: 048
     Dates: end: 20080708
  3. RITALIN LA [Concomitant]
     Indication: ATTENTION DEFICIT/HYPERACTIVITY DISORDER
     Dosage: 60 MG, DAILY (1/D)
     Route: 048
     Dates: start: 20080201

REACTIONS (2)
  - AGGRESSION [None]
  - ANTISOCIAL BEHAVIOUR [None]
